FAERS Safety Report 9272071 (Version 2)
Quarter: 2013Q2

REPORT INFORMATION
  Report Type: Report from Study
  Country: US (occurrence: US)
  Receive Date: 20130506
  Receipt Date: 20130509
  Transmission Date: 20140414
  Serious: Yes (Death, Other)
  Sender: FDA-Public Use
  Company Number: US-ACTELION-A-US2013-82645

PATIENT
  Age: 71 Year
  Sex: Female

DRUGS (15)
  1. TRACLEER [Suspect]
     Indication: PULMONARY ARTERIAL HYPERTENSION
     Route: 048
  2. LASIX [Concomitant]
  3. ADCIRCA [Concomitant]
  4. KCL [Concomitant]
  5. METOLAZONE [Concomitant]
  6. LEVOTHYROXINE [Concomitant]
  7. NEURONTIN [Concomitant]
  8. PULMICORT [Concomitant]
  9. FOSAMAX [Concomitant]
  10. PREDNISONE [Concomitant]
  11. ATROVENT [Concomitant]
  12. OXYGEN [Concomitant]
  13. ZEGERID [Concomitant]
  14. REQUIP [Concomitant]
  15. ARICEPT [Concomitant]

REACTIONS (5)
  - Death [Fatal]
  - Cerebral haemorrhage [Unknown]
  - Multi-organ failure [Unknown]
  - Hospice care [Unknown]
  - Fall [Unknown]
